FAERS Safety Report 21545177 (Version 15)
Quarter: 2024Q4

REPORT INFORMATION
  Report Type: Report from Study
  Country: CA (occurrence: CA)
  Receive Date: 20221103
  Receipt Date: 20241111
  Transmission Date: 20250115
  Serious: Yes (Hospitalization, Other)
  Sender: JOHNSON AND JOHNSON
  Company Number: CA-JNJFOC-20221061054

PATIENT
  Age: 52 Year
  Sex: Female
  Weight: 86 kg

DRUGS (6)
  1. REMICADE [Suspect]
     Active Substance: INFLIXIMAB
     Indication: Crohn^s disease
     Dosage: 04 NUMBER OF UNITS INVOLVED IN COMPLAINT.?EXPIRY DATE-28-FEB-2025?V5: EXPIRY DATE: 30-JUL-2025?V7: E
     Route: 041
     Dates: start: 20150303
  2. REMICADE [Suspect]
     Active Substance: INFLIXIMAB
     Dosage: REINDUCTION AT WEEK 0 AND 4 AND MAINTENANCE EVERY 8 WEEKS. WILL RECEIVE LESS THAN 5MG/KG DUE TO ROUN
     Route: 041
  3. REMICADE [Suspect]
     Active Substance: INFLIXIMAB
     Route: 041
  4. REMICADE [Suspect]
     Active Substance: INFLIXIMAB
     Dosage: THERAPY END DATE : 16/JUL/2024
     Route: 041
     Dates: start: 20240716
  5. REMICADE [Suspect]
     Active Substance: INFLIXIMAB
     Dosage: THERAPY END DATE : 09-SEP-2024
     Route: 041
     Dates: start: 20240909
  6. VERZENIO [Suspect]
     Active Substance: ABEMACICLIB
     Indication: Breast cancer
     Route: 065

REACTIONS (9)
  - Breast cancer stage III [Not Recovered/Not Resolved]
  - Metastases to lymph nodes [Unknown]
  - Breast operation [Recovering/Resolving]
  - Pleural effusion [Recovered/Resolved]
  - Intestinal obstruction [Recovered/Resolved]
  - Device related infection [Not Recovered/Not Resolved]
  - Off label use [Unknown]
  - Inappropriate schedule of product administration [Unknown]
  - Diarrhoea [Unknown]

NARRATIVE: CASE EVENT DATE: 20150303
